FAERS Safety Report 9425268 (Version 1)
Quarter: 2013Q3

REPORT INFORMATION
  Report Type: Spontaneous
  Country: GB (occurrence: GB)
  Receive Date: 20130729
  Receipt Date: 20130729
  Transmission Date: 20140515
  Serious: Yes (Other)
  Sender: FDA-Public Use
  Company Number: GB-PFIZER INC-2013219614

PATIENT
  Age: 3 Year
  Sex: Male

DRUGS (1)
  1. EPIPEN JR [Suspect]
     Indication: ANAPHYLACTIC REACTION
     Dosage: UNK

REACTIONS (3)
  - Emotional distress [Recovered/Resolved]
  - Application site bruise [Unknown]
  - Device malfunction [Unknown]
